FAERS Safety Report 20128908 (Version 1)
Quarter: 2021Q4

REPORT INFORMATION
  Report Type: Spontaneous
  Country: IT (occurrence: IT)
  Receive Date: 20211130
  Receipt Date: 20211130
  Transmission Date: 20220303
  Serious: Yes (Other)
  Sender: FDA-Public Use
  Company Number: IT-ABBVIE-21K-083-4178459-00

PATIENT
  Age: 53 Year
  Sex: Male

DRUGS (3)
  1. VALPROATE SODIUM [Suspect]
     Active Substance: VALPROATE SODIUM
     Indication: Intentional self-injury
     Route: 048
     Dates: start: 20200526, end: 20200526
  2. METHADONE HYDROCHLORIDE [Suspect]
     Active Substance: METHADONE HYDROCHLORIDE
     Indication: Intentional self-injury
     Route: 048
     Dates: start: 20200526, end: 20200526
  3. CHLORPROMAZINE [Suspect]
     Active Substance: CHLORPROMAZINE
     Indication: Intentional self-injury
     Route: 048
     Dates: start: 20200526, end: 20200526

REACTIONS (3)
  - Bradypnoea [Not Recovered/Not Resolved]
  - Drug abuse [Unknown]
  - Lethargy [Not Recovered/Not Resolved]

NARRATIVE: CASE EVENT DATE: 20200526
